FAERS Safety Report 24692912 (Version 2)
Quarter: 2024Q4

REPORT INFORMATION
  Report Type: Spontaneous
  Country: NZ (occurrence: NZ)
  Receive Date: 20241203
  Receipt Date: 20241219
  Transmission Date: 20250114
  Serious: No
  Sender: IPSEN BIOPHARMACEUTICALS, INC.
  Company Number: NZ-IPSEN Group, Research and Development-2024-24292

PATIENT
  Sex: Female

DRUGS (1)
  1. DYSPORT [Suspect]
     Active Substance: ABOBOTULINUMTOXINA
     Indication: Skin wrinkling
     Dosage: 40 UNITS TO GLABELLA COMPLEX
     Route: 065
     Dates: start: 202411, end: 202411

REACTIONS (1)
  - Eyelid ptosis [Unknown]
